FAERS Safety Report 4968164-9 (Version None)
Quarter: 2006Q2

REPORT INFORMATION
  Report Type: 
  Country: None (occurrence: None)
  Receive Date: 20060405
  Receipt Date: 20060327
  Transmission Date: 20061013
  Serious: Yes (Hospitalization)
  Sender: FDA-Public Use
  Company Number: 2006042832

PATIENT
  Age: 36 Year
  Sex: Male

DRUGS (4)
  1. GENOTROPIN [Suspect]
     Indication: OFF LABEL USE
     Dosage: SUBCUTANEOUS
     Route: 058
  2. STANOZOLOL [Concomitant]
  3. TESTSTERONE (TESTOSTERONE) [Concomitant]
  4. ANABOLIC STEROIDS (ANABOLIC STEROIDS) [Concomitant]

REACTIONS (8)
  - DRUG ABUSER [None]
  - DYSPHONIA [None]
  - DYSPNOEA [None]
  - LARYNGEAL OEDEMA [None]
  - LARYNGOCELE [None]
  - MUCOSAL DRYNESS [None]
  - SELF-MEDICATION [None]
  - STRIDOR [None]
